FAERS Safety Report 9248631 (Version 1)
Quarter: 2013Q1

REPORT INFORMATION
  Report Type: Spontaneous
  Country: US (occurrence: None)
  Receive Date: 20130305
  Receipt Date: 20130305
  Transmission Date: 20140127
  Serious: Yes (Other)
  Sender: FDA-Public Use
  Company Number: 163-21880-12091672 (0)

PATIENT
  Age: 62 Year
  Sex: Male

DRUGS (1)
  1. REVLIMID (LENALIDOMIDE) [Suspect]
     Indication: PLASMA CELL MYELOMA
     Dates: start: 20110128, end: 2011

REACTIONS (3)
  - Anaemia [None]
  - Rash [None]
  - Dry skin [None]
